FAERS Safety Report 6868340-4 (Version None)
Quarter: 2010Q3

REPORT INFORMATION
  Report Type: 
  Country: None (occurrence: None)
  Receive Date: 20100722
  Receipt Date: 20080630
  Transmission Date: 20110219
  Serious: No
  Sender: FDA-Public Use
  Company Number: US-PFIZER INC-2008043672

PATIENT
  Sex: Female
  Weight: 90.72 kg

DRUGS (4)
  1. CHANTIX [Suspect]
     Indication: SMOKING CESSATION THERAPY
     Route: 048
     Dates: start: 20080509
  2. KEPPRA [Concomitant]
  3. BENICAR [Concomitant]
  4. CYMBALTA [Concomitant]

REACTIONS (6)
  - ABNORMAL DREAMS [None]
  - FATIGUE [None]
  - FEELING ABNORMAL [None]
  - FEELING DRUNK [None]
  - GAIT DISTURBANCE [None]
  - NAUSEA [None]
